FAERS Safety Report 16873991 (Version 1)
Quarter: 2019Q4

REPORT INFORMATION
  Report Type: Spontaneous
  Country: BE (occurrence: BE)
  Receive Date: 20191001
  Receipt Date: 20191001
  Transmission Date: 20200122
  Serious: Yes (Other)
  Sender: FDA-Public Use
  Company Number: BE-GLAXOSMITHKLINE-BE2019GSK160082

PATIENT
  Age: 85 Year
  Sex: Female

DRUGS (1)
  1. DICLOFENAC [Suspect]
     Active Substance: DICLOFENAC
     Indication: MUSCULOSKELETAL DISCOMFORT
     Dosage: 100 MG, PER DAY

REACTIONS (9)
  - Large intestinal ulcer [Unknown]
  - Large intestinal ulcer haemorrhage [Unknown]
  - Iron deficiency anaemia [Recovered/Resolved]
  - Faecaloma [Unknown]
  - Large intestinal stenosis [Unknown]
  - Intestinal mucosal hypertrophy [Unknown]
  - Colitis [Unknown]
  - Fatigue [Recovered/Resolved]
  - Gastrointestinal disorder [Unknown]
